FAERS Safety Report 16676239 (Version 1)
Quarter: 2019Q3

REPORT INFORMATION
  Report Type: Other
  Country: BE (occurrence: BE)
  Receive Date: 20190807
  Receipt Date: 20190807
  Transmission Date: 20191004
  Serious: Yes (Hospitalization, Other)
  Sender: FDA-Public Use
  Company Number: BE-DENTSPLY-2019SCDP000428

PATIENT
  Sex: Female

DRUGS (2)
  1. LIDOCAINE. [Suspect]
     Active Substance: LIDOCAINE
     Indication: PERIARTHRITIS
     Dosage: 3 DOSAGE FORM, TOTAL, INTRABURSAL INJECTION
     Route: 014
     Dates: start: 2017
  2. DEPO-MEDROL [Suspect]
     Active Substance: METHYLPREDNISOLONE ACETATE
     Indication: PERIARTHRITIS
     Dosage: 3 DOSAGE FORM, TOTAL, INTRABURSAL, INJECTION
     Route: 014
     Dates: start: 2017

REACTIONS (5)
  - Embolia cutis medicamentosa [None]
  - Neuralgia [None]
  - Paraesthesia [None]
  - Administration site pain [None]
  - Asthenia [None]
